FAERS Safety Report 11436180 (Version 1)
Quarter: 2015Q3

REPORT INFORMATION
  Report Type: Spontaneous
  Country: US (occurrence: US)
  Receive Date: 20150821
  Receipt Date: 20150821
  Transmission Date: 20151125
  Serious: No
  Sender: FDA-Public Use
  Company Number: US-ELI_LILLY_AND_COMPANY-US201310007975

PATIENT
  Sex: Male
  Weight: 96.15 kg

DRUGS (6)
  1. CIALIS [Suspect]
     Active Substance: TADALAFIL
     Dosage: 5 MG, QD
     Route: 048
  2. ANDROGEL [Concomitant]
     Active Substance: TESTOSTERONE
     Indication: BLOOD TESTOSTERONE DECREASED
     Dosage: 4 DF, UNK
  3. CIALIS [Suspect]
     Active Substance: TADALAFIL
     Dosage: 20 MG, PRN
     Route: 048
  4. CIALIS [Suspect]
     Active Substance: TADALAFIL
     Indication: ERECTILE DYSFUNCTION
     Dosage: 5 MG, PRN
     Route: 048
  5. CIALIS [Suspect]
     Active Substance: TADALAFIL
     Dosage: 10 MG, PRN
     Route: 048
  6. CIALIS [Suspect]
     Active Substance: TADALAFIL
     Dosage: 1 DF, UNKNOWN
     Route: 048

REACTIONS (4)
  - Drug ineffective [Recovered/Resolved]
  - Flushing [Recovered/Resolved]
  - Wrong technique in product usage process [Unknown]
  - Inappropriate schedule of drug administration [Unknown]
